FAERS Safety Report 7939123-9 (Version None)
Quarter: 2011Q4

REPORT INFORMATION
  Report Type: 
  Country: None (occurrence: None)
  Receive Date: 20111124
  Receipt Date: 20110909
  Transmission Date: 20120403
  Serious: Yes (Hospitalization, Other)
  Sender: FDA-Public Use
  Company Number: GB-ROCHE-1013548

PATIENT
  Sex: Female

DRUGS (7)
  1. IPRATROPIUM BROMIDE [Concomitant]
  2. FLUTICASONE PROPIONATE/SALMETEROL [Concomitant]
  3. SALMETEROL [Concomitant]
  4. ALBUTEROL SULFATE AUTOHALER [Concomitant]
  5. THEOPHYLLINE [Concomitant]
  6. XOLAIR [Suspect]
     Indication: ASTHMA
     Dates: start: 20100107
  7. NASONEX [Concomitant]

REACTIONS (1)
  - ASTHMA [None]
